FAERS Safety Report 23687587 (Version 1)
Quarter: 2024Q1

REPORT INFORMATION
  Report Type: Spontaneous
  Country: US (occurrence: None)
  Receive Date: 20240328
  Receipt Date: 20240328
  Transmission Date: 20240409
  Serious: Yes (Disabling)
  Sender: FDA-Public Use
  Company Number: None

PATIENT
  Age: 61 Year
  Sex: Female

DRUGS (2)
  1. BUPRENORPHINE [Suspect]
     Active Substance: BUPRENORPHINE
     Indication: Drug withdrawal syndrome
     Dates: start: 20111015, end: 20240321
  2. SUBOXONE [Suspect]
     Active Substance: BUPRENORPHINE HYDROCHLORIDE\NALOXONE HYDROCHLORIDE

REACTIONS (10)
  - Malaise [None]
  - Product substitution issue [None]
  - Loose tooth [None]
  - Tooth fracture [None]
  - Tooth loss [None]
  - Dental caries [None]
  - Hypophagia [None]
  - Pain [None]
  - Impaired quality of life [None]
  - Antisocial behaviour [None]

NARRATIVE: CASE EVENT DATE: 20240325
